FAERS Safety Report 8942328 (Version 2)
Quarter: 2013Q1

REPORT INFORMATION
  Report Type: Spontaneous
  Country: US (occurrence: None)
  Receive Date: 20121123
  Receipt Date: 20130115
  Transmission Date: 20140127
  Serious: Yes (Hospitalization, Other)
  Sender: FDA-Public Use
  Company Number: DSA_60980_2012

PATIENT
  Age: 29 Year
  Sex: Female

DRUGS (4)
  1. BUPROPION HYDROCHLORIDE [Suspect]
     Indication: PRODUCT USED FOR UNKNOWN INDICATION
  2. GABAPENTIN [Suspect]
     Route: 048
  3. AMPHETAMINE [Suspect]
     Dosage: NOT THE PRESCRIBED AMOUNT
  4. LAXATIVES [Suspect]
     Dosage: (NOT THE PRESCRIBED AMOUNT)

REACTIONS (12)
  - Toxicity to various agents [None]
  - Overdose [None]
  - Brain death [None]
  - Mydriasis [None]
  - Pupil fixed [None]
  - Electroencephalogram abnormal [None]
  - Fall [None]
  - Dizziness [None]
  - Status epilepticus [None]
  - Hypotension [None]
  - Sinus tachycardia [None]
  - Electrocardiogram QT prolonged [None]
